FAERS Safety Report 25362454 (Version 1)
Quarter: 2025Q2

REPORT INFORMATION
  Report Type: Spontaneous
  Country: GB (occurrence: GB)
  Receive Date: 20250527
  Receipt Date: 20250527
  Transmission Date: 20250717
  Serious: Yes (Hospitalization)
  Sender: MYLAN
  Company Number: GB-MYLANLABS-2025M1041979

PATIENT
  Age: 2 Day
  Sex: Male
  Weight: 2 kg

DRUGS (24)
  1. TACROLIMUS [Suspect]
     Active Substance: TACROLIMUS
     Indication: Immunosuppressant drug therapy
  2. TACROLIMUS [Suspect]
     Active Substance: TACROLIMUS
  3. TACROLIMUS [Suspect]
     Active Substance: TACROLIMUS
     Route: 063
  4. TACROLIMUS [Suspect]
     Active Substance: TACROLIMUS
     Route: 063
  5. TACROLIMUS [Suspect]
     Active Substance: TACROLIMUS
  6. TACROLIMUS [Suspect]
     Active Substance: TACROLIMUS
  7. TACROLIMUS [Suspect]
     Active Substance: TACROLIMUS
     Route: 063
  8. TACROLIMUS [Suspect]
     Active Substance: TACROLIMUS
     Route: 063
  9. CINACALCET [Suspect]
     Active Substance: CINACALCET
     Indication: Hyperparathyroidism
  10. CINACALCET [Suspect]
     Active Substance: CINACALCET
  11. CINACALCET [Suspect]
     Active Substance: CINACALCET
     Route: 063
  12. CINACALCET [Suspect]
     Active Substance: CINACALCET
     Route: 063
  13. CINACALCET [Suspect]
     Active Substance: CINACALCET
  14. CINACALCET [Suspect]
     Active Substance: CINACALCET
  15. CINACALCET [Suspect]
     Active Substance: CINACALCET
     Route: 063
  16. CINACALCET [Suspect]
     Active Substance: CINACALCET
     Route: 063
  17. LABETALOL [Suspect]
     Active Substance: LABETALOL
     Indication: Hypertension
  18. LABETALOL [Suspect]
     Active Substance: LABETALOL
  19. LABETALOL [Suspect]
     Active Substance: LABETALOL
     Route: 063
  20. LABETALOL [Suspect]
     Active Substance: LABETALOL
     Route: 063
  21. LABETALOL [Suspect]
     Active Substance: LABETALOL
  22. LABETALOL [Suspect]
     Active Substance: LABETALOL
  23. LABETALOL [Suspect]
     Active Substance: LABETALOL
     Route: 063
  24. LABETALOL [Suspect]
     Active Substance: LABETALOL
     Route: 063

REACTIONS (3)
  - Hypocalcaemia [Recovered/Resolved]
  - Hypomagnesaemia [Recovered/Resolved]
  - Exposure via breast milk [Recovered/Resolved]
